FAERS Safety Report 4805595-1 (Version None)
Quarter: 2005Q4

REPORT INFORMATION
  Report Type: 
  Country: None (occurrence: None)
  Receive Date: 20051018
  Receipt Date: 20050815
  Transmission Date: 20060501
  Serious: Yes (Other)
  Sender: FDA-Public Use
  Company Number: 19930

PATIENT
  Sex: Female

DRUGS (2)
  1. DICYCLOMINE HCL [Suspect]
     Indication: IRRITABLE BOWEL SYNDROME
     Dosage: 20 MG/IV PUSH
     Route: 042
     Dates: start: 20050814
  2. PHENERGAN [Concomitant]

REACTIONS (3)
  - FEELING ABNORMAL [None]
  - INCORRECT ROUTE OF DRUG ADMINISTRATION [None]
  - TREMOR [None]
